FAERS Safety Report 8523831-5 (Version None)
Quarter: 2012Q3

REPORT INFORMATION
  Report Type: 
  Country: None (occurrence: None)
  Receive Date: 20120720
  Receipt Date: 20120717
  Transmission Date: 20120928
  Serious: Yes (Other)
  Sender: FDA-Public Use
  Company Number: US-PFIZER INC-2012172543

PATIENT
  Sex: Male

DRUGS (9)
  1. ZOLOFT [Suspect]
     Indication: DEPRESSION
     Dosage: 200 MG, 1X/DAY
  2. NAPROSYN [Concomitant]
     Dosage: 250 MG, 2X/DAY WITH FOOD
  3. PROPRANOLOL HYDROCHLORIDE [Concomitant]
     Indication: ANGER
     Dosage: 20 MG, 1 PO TWICE A DAY AND AS NEEDED FOR RAGE
     Route: 048
  4. ZOLOFT [Suspect]
     Indication: ANXIETY
  5. FLEXERIL [Concomitant]
     Indication: MUSCLE SPASMS
     Dosage: 10 MG, 1 TAB 3 TIMES DAILY AS NEEDED
  6. DEPAKOTE [Concomitant]
     Indication: BIPOLAR DISORDER
     Dosage: 500 MG, TAKE ONE IN THE MORNING
  7. EXTRA STRENGTH TYLENOL [Concomitant]
     Indication: PAIN
     Dosage: 500 MG, 2X/DAY
     Route: 048
  8. DEPAKOTE [Concomitant]
     Dosage: 750 MG, 1X/DAY BEDTIME
  9. SIMVASTATIN [Concomitant]
     Indication: BLOOD CHOLESTEROL
     Dosage: 40 MG, 1X/DAY

REACTIONS (14)
  - OBESITY [None]
  - ASTHMA [None]
  - LATEX ALLERGY [None]
  - POST-TRAUMATIC STRESS DISORDER [None]
  - HYPERSENSITIVITY [None]
  - BACK PAIN [None]
  - HYPERLIPIDAEMIA [None]
  - HOMELESS [None]
  - JOINT DISLOCATION [None]
  - BLISTER [None]
  - BIPOLAR DISORDER [None]
  - CONTUSION [None]
  - TOBACCO ABUSE [None]
  - MIGRAINE [None]
